FAERS Safety Report 12558192 (Version 4)
Quarter: 2016Q3

REPORT INFORMATION
  Report Type: Spontaneous
  Country: CN (occurrence: CN)
  Receive Date: 20160714
  Receipt Date: 20160825
  Transmission Date: 20161109
  Serious: Yes (Hospitalization)
  Sender: FDA-Public Use
  Company Number: CN-GLAXOSMITHKLINE-CN2016GSK099912

PATIENT
  Age: 64 Year
  Sex: Male

DRUGS (7)
  1. SERETIDE [Suspect]
     Active Substance: FLUTICASONE PROPIONATE\SALMETEROL XINAFOATE
     Indication: EMPHYSEMA
     Dosage: 1 PUFF(S), BID
     Route: 055
     Dates: end: 20160712
  2. SYMBICORT [Suspect]
     Active Substance: BUDESONIDE\FORMOTEROL FUMARATE DIHYDRATE
     Indication: CHRONIC OBSTRUCTIVE PULMONARY DISEASE
  3. SPIRIVA [Suspect]
     Active Substance: TIOTROPIUM BROMIDE MONOHYDRATE
     Indication: EMPHYSEMA
     Dosage: 1 PUFF(S), QD
     Route: 055
  4. SYMBICORT [Suspect]
     Active Substance: BUDESONIDE\FORMOTEROL FUMARATE DIHYDRATE
     Indication: EMPHYSEMA
     Dosage: 1 PUFF(S), BID
     Route: 055
     Dates: end: 2016
  5. SERETIDE [Suspect]
     Active Substance: FLUTICASONE PROPIONATE\SALMETEROL XINAFOATE
     Indication: CHRONIC OBSTRUCTIVE PULMONARY DISEASE
     Dosage: UNK
     Route: 055
     Dates: start: 2016
  6. INDACATEROL [Suspect]
     Active Substance: INDACATEROL
     Indication: PRODUCT USED FOR UNKNOWN INDICATION
  7. SPIRIVA [Suspect]
     Active Substance: TIOTROPIUM BROMIDE MONOHYDRATE
     Indication: CHRONIC OBSTRUCTIVE PULMONARY DISEASE

REACTIONS (10)
  - Suspected counterfeit product [Unknown]
  - Weight decreased [Unknown]
  - Bronchospasm [Recovered/Resolved]
  - Disease recurrence [Recovering/Resolving]
  - Oxygen saturation decreased [Not Recovered/Not Resolved]
  - Product supply issue [Unknown]
  - Chronic obstructive pulmonary disease [Recovering/Resolving]
  - Wheezing [Unknown]
  - Nasopharyngitis [Recovered/Resolved]
  - Drug ineffective [Unknown]

NARRATIVE: CASE EVENT DATE: 2015
